FAERS Safety Report 10277518 (Version 1)
Quarter: 2014Q3

REPORT INFORMATION
  Report Type: Spontaneous
  Country: AU (occurrence: AU)
  Receive Date: 20140703
  Receipt Date: 20140703
  Transmission Date: 20150326
  Serious: Yes (Other)
  Sender: FDA-Public Use
  Company Number: AU-PFIZER INC-2014178386

PATIENT
  Age: 69 Year
  Sex: Male

DRUGS (1)
  1. CAVERJECT [Suspect]
     Active Substance: ALPROSTADIL
     Dosage: 40 UG, UNK

REACTIONS (5)
  - Drug effect incomplete [Unknown]
  - Drug ineffective [Unknown]
  - Decreased appetite [Unknown]
  - Penile haemorrhage [Unknown]
  - Product label issue [Unknown]
